FAERS Safety Report 11139811 (Version 1)
Quarter: 2015Q2

REPORT INFORMATION
  Report Type: Spontaneous
  Country: US (occurrence: None)
  Receive Date: 20150522
  Receipt Date: 20150522
  Transmission Date: 20150821
  Serious: Yes (Other)
  Sender: FDA-Public Use
  Company Number: 2015COR00105

PATIENT
  Age: 81 Year
  Sex: Male

DRUGS (3)
  1. GLIPIZIDE. [Suspect]
     Active Substance: GLIPIZIDE
  2. HYDROCHLOROTHIAZIDE. [Concomitant]
     Active Substance: HYDROCHLOROTHIAZIDE
  3. LISINOPRIL. [Concomitant]
     Active Substance: LISINOPRIL

REACTIONS (8)
  - Labile blood pressure [None]
  - Hypoglycaemia [None]
  - Syncope [None]
  - Blood glucose increased [None]
  - Weight decreased [None]
  - Erectile dysfunction [None]
  - Glycosylated haemoglobin increased [None]
  - Treatment noncompliance [None]
